FAERS Safety Report 25106353 (Version 1)
Quarter: 2025Q1

REPORT INFORMATION
  Report Type: Spontaneous
  Country: US (occurrence: None)
  Receive Date: 20250320
  Receipt Date: 20250320
  Transmission Date: 20250409
  Serious: Yes (Hospitalization)
  Sender: FDA-CTU
  Company Number: None

PATIENT
  Age: 49 Year
  Sex: Male

DRUGS (1)
  1. SULFAMETHIZOLE\TRIMETHOPRIM [Suspect]
     Active Substance: SULFAMETHIZOLE\TRIMETHOPRIM
     Route: 048
     Dates: start: 20240610, end: 20240610

REACTIONS (3)
  - Fixed eruption [None]
  - Burning sensation [None]
  - Gait disturbance [None]

NARRATIVE: CASE EVENT DATE: 20240610
